FAERS Safety Report 10185423 (Version 1)
Quarter: 2014Q2

REPORT INFORMATION
  Report Type: Spontaneous
  Country: US (occurrence: None)
  Receive Date: 20140520
  Receipt Date: 20140520
  Transmission Date: 20141212
  Serious: Yes (Hospitalization)
  Sender: FDA-Public Use
  Company Number: None

PATIENT
  Age: 29 Year
  Sex: Female

DRUGS (1)
  1. OXYCODONE-ACETAMINOPHEN [Suspect]
     Indication: PAIN
     Route: 048
     Dates: start: 20121013, end: 20121014

REACTIONS (4)
  - Throat tightness [None]
  - Palatal oedema [None]
  - Erythema [None]
  - Pruritus [None]
